FAERS Safety Report 9726477 (Version 3)
Quarter: 2013Q4

REPORT INFORMATION
  Report Type: Spontaneous
  Country: US (occurrence: US)
  Receive Date: 20131203
  Receipt Date: 20131230
  Transmission Date: 20140711
  Serious: No
  Sender: FDA-Public Use
  Company Number: US-GILEAD-2013-0087104

PATIENT
  Sex: Female

DRUGS (3)
  1. LETAIRIS [Suspect]
     Indication: PULMONARY ARTERIAL HYPERTENSION
     Dosage: 5 MG, QD
     Route: 048
     Dates: start: 20130701
  2. LETAIRIS [Suspect]
     Dosage: 2.5 MG, UNK
     Route: 048
     Dates: start: 20131008
  3. IMDUR [Concomitant]

REACTIONS (3)
  - Presyncope [Unknown]
  - Hypertension [Unknown]
  - Hypotension [Unknown]
